APPROVED DRUG PRODUCT: FORTAMET
Active Ingredient: METFORMIN HYDROCHLORIDE
Strength: 500MG **Federal Register determination that product was not discontinued or withdrawn for safety or effectiveness reasons**
Dosage Form/Route: TABLET, EXTENDED RELEASE;ORAL
Application: N021574 | Product #001
Applicant: ANDRX LABS LLC
Approved: Apr 27, 2004 | RLD: Yes | RS: No | Type: DISCN